FAERS Safety Report 13136871 (Version 1)
Quarter: 2017Q1

REPORT INFORMATION
  Report Type: Spontaneous
  Country: CN (occurrence: CN)
  Receive Date: 20170123
  Receipt Date: 20170123
  Transmission Date: 20170428
  Serious: Yes (Other)
  Sender: FDA-Public Use
  Company Number: CN-GLAXOSMITHKLINE-CN2017GSK006401

PATIENT
  Age: 65 Year
  Sex: Male

DRUGS (1)
  1. LAMICTAL [Suspect]
     Active Substance: LAMOTRIGINE
     Indication: DEPRESSION
     Dosage: 50 MG, BID
     Route: 048
     Dates: start: 20160711, end: 20160805

REACTIONS (5)
  - Negativism [Unknown]
  - Insomnia [Recovering/Resolving]
  - Abnormal behaviour [Recovering/Resolving]
  - Fatigue [Recovering/Resolving]
  - Rash [Recovered/Resolved]

NARRATIVE: CASE EVENT DATE: 20160725
